FAERS Safety Report 24466487 (Version 1)
Quarter: 2024Q4

REPORT INFORMATION
  Report Type: Spontaneous
  Country: US (occurrence: US)
  Receive Date: 20241018
  Receipt Date: 20241018
  Transmission Date: 20250114
  Serious: No
  Sender: MYLAN
  Company Number: US-MYLANLABS-2024M1078414

PATIENT
  Sex: Female
  Weight: 61.23 kg

DRUGS (2)
  1. TYRVAYA [Suspect]
     Active Substance: VARENICLINE TARTRATE
     Indication: Dry eye
     Dosage: 0.03 MILLIGRAM, QD (ONCE A DAY)
     Route: 065
  2. TYRVAYA [Suspect]
     Active Substance: VARENICLINE TARTRATE
     Dosage: UNK, BID (TWICE A DAY)
     Route: 065
     Dates: start: 20240608

REACTIONS (2)
  - Nightmare [Unknown]
  - Off label use [Unknown]
